FAERS Safety Report 8437363-6 (Version None)
Quarter: 2012Q2

REPORT INFORMATION
  Report Type: 
  Country: None (occurrence: None)
  Receive Date: 20120614
  Receipt Date: 20120319
  Transmission Date: 20120825
  Serious: No
  Sender: FDA-Public Use
  Company Number: US-AMGEN-USASP2012017508

PATIENT
  Age: 84 Year
  Sex: Female

DRUGS (6)
  1. VITAMIN D [Concomitant]
  2. FISH OIL [Concomitant]
  3. LYRICA [Concomitant]
  4. PROLIA [Suspect]
     Indication: OSTEOPENIA
     Dosage: 60 MG, Q6MO
  5. CALCIUM [Concomitant]
  6. LISINOPRIL [Concomitant]

REACTIONS (1)
  - MALOCCLUSION [None]
